FAERS Safety Report 12508395 (Version 1)
Quarter: 2016Q2

REPORT INFORMATION
  Report Type: Spontaneous
  Country: US (occurrence: None)
  Receive Date: 20160628
  Receipt Date: 20160628
  Transmission Date: 20160815
  Serious: Yes (Hospitalization)
  Sender: FDA-Public Use
  Company Number: None

PATIENT
  Age: 52 Year
  Sex: Female
  Weight: 97.7 kg

DRUGS (2)
  1. FAMOTIDINE. [Suspect]
     Active Substance: FAMOTIDINE
     Indication: GASTROOESOPHAGEAL REFLUX DISEASE
     Route: 048
     Dates: start: 20160510, end: 20160625
  2. TIZANIDINE. [Suspect]
     Active Substance: TIZANIDINE
     Indication: HEADACHE
     Route: 048
     Dates: start: 20141215, end: 20160625

REACTIONS (4)
  - Mental status changes [None]
  - Dysarthria [None]
  - Drug interaction [None]
  - Balance disorder [None]

NARRATIVE: CASE EVENT DATE: 20160625
